FAERS Safety Report 8807536 (Version 5)
Quarter: 2012Q4

REPORT INFORMATION
  Report Type: 
  Country: US (occurrence: US)
  Receive Date: 20120925
  Receipt Date: 20121121
  Transmission Date: 20130627
  Serious: Yes (Other)
  Sender: FDA-Public Use
  Company Number: US-PFIZER INC-2012232525

PATIENT
  Age: 59 Year
  Sex: Female
  Weight: 65.76 kg

DRUGS (2)
  1. RELPAX [Suspect]
     Indication: MIGRAINE
     Dosage: 20 mg (1 or 2 pills per day) as needed
     Route: 048
  2. ASPIRIN\CAFFEINE\CODEINE PHOSPHATE\PHENACETIN [Suspect]
     Indication: MIGRAINE
     Dosage: 10-12 tablets in 24 hours
     Dates: start: 1982

REACTIONS (1)
  - Drug dependence [Unknown]
